FAERS Safety Report 10166215 (Version 1)
Quarter: 2014Q2

REPORT INFORMATION
  Report Type: Spontaneous
  Country: US (occurrence: US)
  Receive Date: 20140512
  Receipt Date: 20140512
  Transmission Date: 20141212
  Serious: No
  Sender: FDA-Public Use
  Company Number: US-BIOGENIDEC-2014BI042830

PATIENT
  Age: 39 Year
  Sex: Female

DRUGS (5)
  1. AVONEX [Suspect]
     Indication: MULTIPLE SCLEROSIS
     Route: 030
     Dates: start: 20131216
  2. TOPAMAX [Concomitant]
  3. NORCO [Concomitant]
  4. GABAPENTIN [Concomitant]
  5. POTASSIUM PILLS [Concomitant]

REACTIONS (6)
  - Migraine [Not Recovered/Not Resolved]
  - Time perception altered [Not Recovered/Not Resolved]
  - Stress [Unknown]
  - Confusional state [Not Recovered/Not Resolved]
  - Headache [Not Recovered/Not Resolved]
  - Multiple sclerosis relapse [Not Recovered/Not Resolved]
